FAERS Safety Report 5132733-6 (Version None)
Quarter: 2006Q4

REPORT INFORMATION
  Report Type: 
  Country: None (occurrence: None)
  Receive Date: 20061023
  Receipt Date: 20061017
  Transmission Date: 20070319
  Serious: Yes (Other)
  Sender: FDA-Public Use
  Company Number: GB-GLAXOSMITHKLINE-B0442690A

PATIENT
  Age: 33 Year
  Sex: Male

DRUGS (3)
  1. ZYBAN [Suspect]
     Indication: SMOKING CESSATION THERAPY
     Route: 048
  2. AMPHETAMINE [Concomitant]
  3. CANNABIS [Concomitant]

REACTIONS (9)
  - ABNORMAL BEHAVIOUR [None]
  - CONFUSIONAL STATE [None]
  - DEMENTIA [None]
  - DEPRESSED MOOD [None]
  - DRUG SCREEN POSITIVE [None]
  - HALLUCINATION [None]
  - OVERDOSE [None]
  - SCREAMING [None]
  - SOCIAL AVOIDANT BEHAVIOUR [None]
